FAERS Safety Report 15889435 (Version 1)
Quarter: 2019Q1

REPORT INFORMATION
  Report Type: Spontaneous
  Country: US (occurrence: US)
  Receive Date: 20190109
  Receipt Date: 20190109
  Transmission Date: 20190417
  Serious: Yes (Hospitalization)
  Sender: FDA-Public Use
  Company Number: None

PATIENT
  Age: 63 Year
  Sex: Female
  Weight: 51.3 kg

DRUGS (1)
  1. OXALIPLATIN 100MG/20ML [Suspect]
     Active Substance: OXALIPLATIN
     Indication: COLON CANCER
     Dosage: 130MG/M2 (202MG) Q3W IV
     Route: 042
     Dates: start: 20190102

REACTIONS (5)
  - Swollen tongue [None]
  - Dizziness [None]
  - Wheezing [None]
  - Dyspnoea [None]
  - Dysphonia [None]

NARRATIVE: CASE EVENT DATE: 20190102
